FAERS Safety Report 4667185-3 (Version None)
Quarter: 2005Q2

REPORT INFORMATION
  Report Type: 
  Country: None (occurrence: None)
  Receive Date: 20050520
  Receipt Date: 20050509
  Transmission Date: 20051028
  Serious: Yes (Other)
  Sender: FDA-Public Use
  Company Number: US-SANOFI-SYNTHELABO-A03200501371

PATIENT
  Age: 51 Year
  Sex: Male

DRUGS (1)
  1. PLAQUENIL [Suspect]
     Indication: DRUG USE FOR UNKNOWN INDICATION
     Dosage: UNK
     Route: 048

REACTIONS (4)
  - MUSCLE NECROSIS [None]
  - MUSCULAR WEAKNESS [None]
  - MYOPATHY [None]
  - PERIPHERAL SENSORY NEUROPATHY [None]
